FAERS Safety Report 25890147 (Version 1)
Quarter: 2025Q4

REPORT INFORMATION
  Report Type: Spontaneous
  Country: IN (occurrence: IN)
  Receive Date: 20251007
  Receipt Date: 20251007
  Transmission Date: 20260117
  Serious: Yes (Life-Threatening, Hospitalization)
  Sender: MYLAN
  Company Number: IN-MYLANLABS-2025M1085396

PATIENT
  Age: 7 Day
  Weight: 1.7 kg

DRUGS (1)
  1. SILDENAFIL [Suspect]
     Active Substance: SILDENAFIL
     Indication: Newborn persistent pulmonary hypertension
     Dosage: 0.5 MILLIGRAM/KILOGRAM, TID

REACTIONS (2)
  - Newborn persistent pulmonary hypertension [Recovered/Resolved]
  - Condition aggravated [Recovered/Resolved]
